FAERS Safety Report 6184086-2 (Version None)
Quarter: 2009Q2

REPORT INFORMATION
  Report Type: 
  Country: None (occurrence: None)
  Receive Date: 20090508
  Receipt Date: 20090502
  Transmission Date: 20091009
  Serious: Yes (Hospitalization)
  Sender: FDA-Public Use
  Company Number: ID-BAYER-200919775GPV

PATIENT
  Age: 71 Year
  Sex: Male
  Weight: 57 kg

DRUGS (11)
  1. MOXIFLOXACIN VS AMOXICILLIN-CLAVULANATE [Suspect]
     Indication: BRONCHITIS
     Route: 048
     Dates: start: 20090416, end: 20090421
  2. CODEINE SUL TAB [Concomitant]
     Indication: BRONCHITIS
     Route: 048
     Dates: start: 20090415
  3. SALBRON [Concomitant]
     Indication: BRONCHITIS
     Route: 048
     Dates: start: 20090415
  4. AMINOPHYLLIN [Concomitant]
     Indication: BRONCHITIS
     Route: 048
     Dates: start: 20090415
  5. POTIO NIGRA [Concomitant]
     Indication: BRONCHITIS
     Route: 048
     Dates: start: 20090415
  6. AMLODIPINE [Concomitant]
     Indication: HYPERTENSION
     Route: 048
     Dates: start: 20090415
  7. ALDACTONE [Concomitant]
     Indication: HYPERTENSION
     Route: 048
     Dates: start: 20090415, end: 20090426
  8. PRONEURON [Concomitant]
     Indication: ARTHRALGIA
     Route: 048
     Dates: start: 20090415
  9. PHARMATON VIT [Concomitant]
     Indication: DRUG USE FOR UNKNOWN INDICATION
     Route: 048
     Dates: start: 20090415, end: 20090426
  10. OMEPRAZOLE [Concomitant]
     Indication: GASTRITIS
     Route: 048
     Dates: start: 20090423
  11. BECOM-C [Concomitant]
     Indication: DRUG USE FOR UNKNOWN INDICATION
     Route: 048
     Dates: start: 20090428

REACTIONS (1)
  - BRONCHITIS [None]
